FAERS Safety Report 6020219-6 (Version None)
Quarter: 2008Q4

REPORT INFORMATION
  Report Type: 
  Country: None (occurrence: None)
  Receive Date: 20081226
  Receipt Date: 20081215
  Transmission Date: 20090506
  Serious: Yes (Other)
  Sender: FDA-Public Use
  Company Number: PHHY2008FR25039

PATIENT
  Sex: Female
  Weight: 65 kg

DRUGS (6)
  1. RECLAST [Suspect]
     Indication: OSTEOPOROSIS POSTMENOPAUSAL
     Dosage: UNK
     Route: 042
     Dates: start: 20080929
  2. ESOMEPRAZOLE MAGNESIUM [Concomitant]
     Dosage: 20 MG, QD
  3. INSULIN GLARGINE [Concomitant]
     Indication: TYPE 1 DIABETES MELLITUS
  4. METFORMIN HCL [Concomitant]
  5. DIAMICRON [Concomitant]
  6. ELISOR [Concomitant]

REACTIONS (6)
  - ANKYLOSING SPONDYLITIS [None]
  - CHILLS [None]
  - MUSCULOSKELETAL PAIN [None]
  - MYALGIA [None]
  - NECK PAIN [None]
  - PAIN IN EXTREMITY [None]
